FAERS Safety Report 11863110 (Version 2)
Quarter: 2016Q4

REPORT INFORMATION
  Report Type: Spontaneous
  Country: US (occurrence: US)
  Receive Date: 20151223
  Receipt Date: 20161220
  Transmission Date: 20170206
  Serious: No
  Sender: FDA-Public Use
  Company Number: US-PAR PHARMACEUTICAL, INC-2015SCPR014320

PATIENT

DRUGS (1)
  1. APLISOL [Suspect]
     Active Substance: TUBERCULIN PURIFIED PROTEIN DERIVATIVE
     Indication: TUBERCULIN TEST
     Dosage: 0.1 ML, SINGLE
     Route: 023
     Dates: start: 2015, end: 2015

REACTIONS (2)
  - Product quality issue [Unknown]
  - Tuberculin test false positive [Unknown]

NARRATIVE: CASE EVENT DATE: 2015
